FAERS Safety Report 6404155-9 (Version None)
Quarter: 2009Q4

REPORT INFORMATION
  Report Type: 
  Country: None (occurrence: None)
  Receive Date: 20091016
  Receipt Date: 20090929
  Transmission Date: 20100525
  Serious: No
  Sender: FDA-Public Use
  Company Number: US-ALEXION-A200900793

PATIENT
  Sex: Female

DRUGS (9)
  1. SOLIRIS [Suspect]
     Indication: PAROXYSMAL NOCTURNAL HAEMOGLOBINURIA
     Dosage: 600 MG, QW
     Route: 042
     Dates: start: 20090601, end: 20090101
  2. SOLIRIS [Suspect]
     Dosage: 900 MG, Q2W
     Route: 042
     Dates: start: 20090101
  3. PROGRAF [Concomitant]
  4. ACTIGALL [Concomitant]
  5. COLACE [Concomitant]
  6. COUMADIN [Concomitant]
  7. PROTONIX                           /01263201/ [Concomitant]
  8. LOPRESSOR [Concomitant]
  9. VITAMINS                           /90003601/ [Concomitant]

REACTIONS (1)
  - NAUSEA [None]
